FAERS Safety Report 6207505-1 (Version None)
Quarter: 2009Q2

REPORT INFORMATION
  Report Type: 
  Country: None (occurrence: None)
  Receive Date: 20090526
  Receipt Date: 20090511
  Transmission Date: 20091009
  Serious: Yes (Hospitalization)
  Sender: FDA-Public Use
  Company Number: 2009-GWCA-045

PATIENT
  Age: 70 Year
  Sex: Male
  Weight: 95.2554 kg

DRUGS (2)
  1. ALDARA [Suspect]
     Indication: ACTINIC KERATOSIS
     Dosage: APPLICATION - 3XW - TOICAL
     Route: 061
     Dates: start: 20090401
  2. LOSARTAN POTASSIUM-HYDROCHLOROTHIAZIDE        (HYZAAR) - TAB [Concomitant]

REACTIONS (3)
  - APPLICATION SITE SCAB [None]
  - CHOLECYSTITIS [None]
  - CHOLELITHIASIS [None]
